FAERS Safety Report 4823362-X (Version None)
Quarter: 2005Q4

REPORT INFORMATION
  Report Type: 
  Country: None (occurrence: None)
  Receive Date: 20051107
  Receipt Date: 20051020
  Transmission Date: 20060501
  Serious: No
  Sender: FDA-Public Use
  Company Number: 230004E05GBR

PATIENT
  Age: 35 Year
  Sex: Female

DRUGS (2)
  1. REBIF [Suspect]
     Dosage: 44 MCG, 3 IN 1 WEEKS, SUBCUTANEOUS
     Route: 058
     Dates: start: 20050428, end: 20051019
  2. FERROUS SULFATE TAB [Concomitant]

REACTIONS (4)
  - CHEST DISCOMFORT [None]
  - MYOCARDIAL ISCHAEMIA [None]
  - PALPITATIONS [None]
  - THROAT TIGHTNESS [None]
